FAERS Safety Report 7503058-6 (Version None)
Quarter: 2011Q2

REPORT INFORMATION
  Report Type: 
  Country: None (occurrence: None)
  Receive Date: 20110525
  Receipt Date: 20110311
  Transmission Date: 20111010
  Serious: No
  Sender: FDA-Public Use
  Company Number: US-BAUSCH-2011BL001526

PATIENT
  Age: 68 Year
  Sex: Male

DRUGS (7)
  1. TRANXENE [Concomitant]
     Indication: MENTAL DISORDER
  2. BETOPTIC [Concomitant]
     Indication: GLAUCOMA
  3. PHENYLEPHRINE HYDROCHLORIDE OPHTHALMIC SOLUTION USP 2.5% [Suspect]
     Indication: PREOPERATIVE CARE
     Route: 047
     Dates: start: 20110309, end: 20110309
  4. CYCLOPENTOLATE HYDROCHLORIDE [Suspect]
     Indication: PREOPERATIVE CARE
     Route: 047
     Dates: start: 20110309, end: 20110309
  5. ELAVIL [Concomitant]
     Indication: MENTAL DISORDER
     Route: 048
  6. LIPANTHYL ^BRISTOL-MYERS SQUIBB^ [Concomitant]
     Indication: BLOOD CHOLESTEROL INCREASED
  7. AZOPT [Concomitant]
     Indication: GLAUCOMA

REACTIONS (1)
  - BACK PAIN [None]
